FAERS Safety Report 5980261-8 (Version None)
Quarter: 2008Q4

REPORT INFORMATION
  Report Type: 
  Country: None (occurrence: None)
  Receive Date: 20081205
  Receipt Date: 20081126
  Transmission Date: 20090506
  Serious: Yes (Death)
  Sender: FDA-Public Use
  Company Number: PHHY2008JP30400

PATIENT
  Sex: Male

DRUGS (4)
  1. ICL670A ICL+DISTAB [Suspect]
     Indication: IRON OVERLOAD
     Dosage: 1000 MG/D
     Route: 048
     Dates: start: 20080806, end: 20080819
  2. STARASID [Concomitant]
     Indication: MYELODYSPLASTIC SYNDROME
     Dosage: UNK
     Dates: start: 20080827, end: 20080907
  3. ADRIACIN [Concomitant]
     Indication: MYELODYSPLASTIC SYNDROME
     Dosage: UNK
     Route: 042
     Dates: start: 20080806, end: 20080806
  4. CYTARABINE [Concomitant]
     Indication: MYELODYSPLASTIC SYNDROME
     Dosage: 120 MG, UNK
     Route: 042
     Dates: start: 20080827, end: 20080827

REACTIONS (3)
  - ARRHYTHMIA [None]
  - CARDIAC FAILURE [None]
  - DIARRHOEA [None]
